FAERS Safety Report 5068146-5 (Version None)
Quarter: 2006Q3

REPORT INFORMATION
  Report Type: 
  Country: None (occurrence: None)
  Receive Date: 20060802
  Receipt Date: 20060612
  Transmission Date: 20061208
  Serious: Yes (Other)
  Sender: FDA-Public Use
  Company Number: DE-BRISTOL-MYERS SQUIBB COMPANY-13410170

PATIENT
  Age: 24 Year
  Sex: Male
  Weight: 72 kg

DRUGS (1)
  1. ABILIFY [Suspect]
     Dosage: REDUCED TO 5 MG

REACTIONS (3)
  - CIRCULATORY COLLAPSE [None]
  - EXTRASYSTOLES [None]
  - SYNCOPE [None]
